FAERS Safety Report 16368861 (Version 1)
Quarter: 2019Q2

REPORT INFORMATION
  Report Type: Report from Study
  Country: IT (occurrence: IT)
  Receive Date: 20190529
  Receipt Date: 20190529
  Transmission Date: 20190711
  Serious: Yes (Hospitalization, Other)
  Sender: FDA-Public Use
  Company Number: IT-PFIZER INC-2019220353

PATIENT
  Age: 18 Year
  Sex: Female

DRUGS (6)
  1. MEBEVERINE HYDROCHLORIDE [Suspect]
     Active Substance: MEBEVERINE HYDROCHLORIDE
     Dosage: 10 DF, TOTAL
     Route: 048
     Dates: start: 20190509, end: 20190509
  2. MOMENT [Suspect]
     Active Substance: IBUPROFEN
     Dosage: 6 DF, TOTAL
     Route: 048
     Dates: start: 20190509, end: 20190509
  3. XANAX [Suspect]
     Active Substance: ALPRAZOLAM
     Dosage: 30 DF, TOTAL
     Route: 048
     Dates: start: 20190509, end: 20190509
  4. PAROXETINE. [Suspect]
     Active Substance: PAROXETINE
     Dosage: 5 DF, TOTAL
     Route: 048
     Dates: start: 20190509, end: 20190509
  5. EUTIROX [Suspect]
     Active Substance: LEVOTHYROXINE SODIUM
     Dosage: 20 DF, TOTAL
     Route: 048
     Dates: start: 20190509, end: 20190509
  6. BUSCOFEN [IBUPROFEN] [Suspect]
     Active Substance: IBUPROFEN
     Dosage: 10 DF, TOTAL
     Route: 048
     Dates: start: 20190509, end: 20190509

REACTIONS (3)
  - Sopor [Not Recovered/Not Resolved]
  - Slow speech [Not Recovered/Not Resolved]
  - Drug abuse [Not Recovered/Not Resolved]

NARRATIVE: CASE EVENT DATE: 20190509
